FAERS Safety Report 24573924 (Version 2)
Quarter: 2024Q4

REPORT INFORMATION
  Report Type: Report from Study
  Country: US (occurrence: US)
  Receive Date: 20241104
  Receipt Date: 20241104
  Transmission Date: 20250115
  Serious: Yes (Death)
  Sender: ROCHE
  Company Number: US-ROCHE-10000121087

PATIENT
  Age: 77 Year
  Sex: Female

DRUGS (1)
  1. ACTEMRA ACTPEN [Suspect]
     Active Substance: TOCILIZUMAB
     Indication: Polychondritis
     Dosage: INJECT 162MG SUBCUTANEOUSLY ONCE WEEKLY
     Route: 058

REACTIONS (2)
  - Death [Fatal]
  - Off label use [Unknown]
